FAERS Safety Report 24597371 (Version 3)
Quarter: 2025Q4

REPORT INFORMATION
  Report Type: Spontaneous
  Country: US (occurrence: US)
  Receive Date: 20241110
  Receipt Date: 20251013
  Transmission Date: 20260117
  Serious: No
  Sender: SANOFI AVENTIS
  Company Number: US-SA-2024SA310904

PATIENT
  Age: 22 Year
  Sex: Male

DRUGS (6)
  1. DUPIXENT [Suspect]
     Active Substance: DUPILUMAB
     Indication: Dermatitis atopic
     Dosage: 300 MG, QOW
     Route: 058
     Dates: start: 20240913
  2. DUPIXENT [Suspect]
     Active Substance: DUPILUMAB
     Indication: Eczema
  3. CLARITIN [Concomitant]
     Active Substance: LORATADINE
  4. VITAMIN D3 [Concomitant]
     Active Substance: CHOLECALCIFEROL
     Dosage: UNK
  5. Cerave Psoriasis [Concomitant]
     Dosage: UNK
  6. AMMONIUM LACTATE [Concomitant]
     Active Substance: AMMONIUM LACTATE
     Dosage: UNK

REACTIONS (7)
  - Sleep disorder due to a general medical condition [Not Recovered/Not Resolved]
  - Skin irritation [Not Recovered/Not Resolved]
  - Pruritus [Recovered/Resolved]
  - Rash [Not Recovered/Not Resolved]
  - Dermatitis atopic [Recovered/Resolved]
  - Dry skin [Recovered/Resolved]
  - Erythema [Recovered/Resolved]

NARRATIVE: CASE EVENT DATE: 20240101
